FAERS Safety Report 7217546-3 (Version None)
Quarter: 2011Q1

REPORT INFORMATION
  Report Type: 
  Country: None (occurrence: None)
  Receive Date: 20110110
  Receipt Date: 20101231
  Transmission Date: 20110831
  Serious: Yes (Death)
  Sender: FDA-Public Use
  Company Number: US-PFIZER INC-2011003041

PATIENT
  Age: 27 Year
  Sex: Male

DRUGS (6)
  1. TRICYCLIC ANTIDEPRESSANTS [Suspect]
  2. MORPHINE [Suspect]
  3. ACETAMINOPHEN [Suspect]
  4. IBUPROFEN [Suspect]
  5. DIPHENHYDRAMINE [Suspect]
  6. OXYCODONE [Suspect]

REACTIONS (1)
  - DRUG ABUSE [None]
